FAERS Safety Report 7964783-6 (Version None)
Quarter: 2011Q4

REPORT INFORMATION
  Report Type: 
  Country: None (occurrence: None)
  Receive Date: 20111208
  Receipt Date: 20111203
  Transmission Date: 20120403
  Serious: Yes (Hospitalization, Other)
  Sender: FDA-Public Use
  Company Number: US-SANOFI-AVENTIS-2011SA079969

PATIENT
  Age: 59 Year
  Sex: Female

DRUGS (5)
  1. LANTUS [Suspect]
     Indication: TYPE 2 DIABETES MELLITUS
     Route: 058
     Dates: start: 20020101
  2. ALL OTHER THERAPEUTIC PRODUCTS [Suspect]
     Route: 065
  3. NEURONTIN [Concomitant]
  4. PREDNISONE TAB [Concomitant]
  5. SOLOSTAR [Suspect]
     Indication: TYPE 2 DIABETES MELLITUS
     Dates: start: 20020101

REACTIONS (7)
  - INJECTION SITE REACTION [None]
  - GASTROINTESTINAL DISORDER [None]
  - INJECTION SITE HAEMATOMA [None]
  - INJECTION SITE PAIN [None]
  - LIP NEOPLASM MALIGNANT STAGE UNSPECIFIED [None]
  - INJECTION SITE HAEMORRHAGE [None]
  - BLOOD GLUCOSE INCREASED [None]
